FAERS Safety Report 4755228-8 (Version None)
Quarter: 2005Q3

REPORT INFORMATION
  Report Type: 
  Country: None (occurrence: None)
  Receive Date: 20050829
  Receipt Date: 20041213
  Transmission Date: 20060218
  Serious: Yes (Hospitalization)
  Sender: FDA-Public Use
  Company Number: US-MERCK-0412USA01614

PATIENT
  Age: 44 Year
  Sex: Male
  Weight: 69 kg

DRUGS (6)
  1. VIOXX [Suspect]
     Indication: ARTHRALGIA
     Route: 048
     Dates: start: 20030301, end: 20041001
  2. VIOXX [Suspect]
     Indication: POSTOPERATIVE ANALGESIA
     Route: 048
     Dates: start: 20030301, end: 20041001
  3. FOSINOPRIL SODIUM [Concomitant]
     Route: 065
     Dates: start: 20031114
  4. ASPIRIN [Concomitant]
     Route: 065
     Dates: start: 20040114
  5. ZOCOR [Concomitant]
     Route: 048
     Dates: start: 20031114
  6. PLAVIX [Concomitant]
     Route: 065
     Dates: start: 20031201

REACTIONS (13)
  - ANGINA UNSTABLE [None]
  - ARTHRALGIA [None]
  - CORONARY ARTERY DISEASE [None]
  - CORONARY ARTERY STENOSIS [None]
  - DILATATION ATRIAL [None]
  - HYPERTENSION [None]
  - JOINT INJURY [None]
  - MYOCARDIAL INFARCTION [None]
  - PAIN IN EXTREMITY [None]
  - PERICARDIAL EFFUSION [None]
  - PERICARDITIS [None]
  - POST PROCEDURAL COMPLICATION [None]
  - TRICUSPID VALVE INCOMPETENCE [None]
